FAERS Safety Report 17046081 (Version 2)
Quarter: 2023Q1

REPORT INFORMATION
  Report Type: Spontaneous
  Country: IT (occurrence: IT)
  Receive Date: 20191119
  Receipt Date: 20230208
  Transmission Date: 20230418
  Serious: Yes (Hospitalization)
  Sender: FDA-Public Use
  Company Number: IT-MINISAL02-585657

PATIENT
  Age: 43 Year
  Sex: Female

DRUGS (4)
  1. ALPRAZOLAM [Suspect]
     Active Substance: ALPRAZOLAM
     Indication: Product used for unknown indication
     Dosage: 10 DOSAGE FORM, TOTAL
     Route: 065
     Dates: start: 20181219, end: 20181219
  2. PAROXETINE [Suspect]
     Active Substance: PAROXETINE
     Indication: Product used for unknown indication
     Dosage: 28 DOSAGE FORM, TOTAL
     Route: 065
     Dates: start: 20181219, end: 20181219
  3. FELODIPINE\RAMIPRIL [Suspect]
     Active Substance: FELODIPINE\RAMIPRIL
     Indication: Product used for unknown indication
     Dosage: 28 DOSAGE FORM, TOTAL
     Route: 065
     Dates: start: 20181219, end: 20181219
  4. FLURAZEPAM HYDROCHLORIDE [Suspect]
     Active Substance: FLURAZEPAM HYDROCHLORIDE
     Indication: Product used for unknown indication
     Dosage: 10 DOSAGE FORM, TOTAL
     Route: 065
     Dates: start: 20181219, end: 20181219

REACTIONS (2)
  - Sopor [Recovered/Resolved]
  - Mydriasis [Recovered/Resolved]

NARRATIVE: CASE EVENT DATE: 20181219
